FAERS Safety Report 8344696-0 (Version None)
Quarter: 2012Q2

REPORT INFORMATION
  Report Type: 
  Country: None (occurrence: None)
  Receive Date: 20120508
  Receipt Date: 20120430
  Transmission Date: 20120825
  Serious: Yes (Other)
  Sender: FDA-Public Use
  Company Number: US-ABBOTT-12P-163-0920121-00

PATIENT
  Sex: Female
  Weight: 113.5 kg

DRUGS (10)
  1. PAXIL CR [Concomitant]
     Indication: MIGRAINE
  2. JANUVIA [Concomitant]
     Indication: DIABETES MELLITUS
  3. PRANDIN [Concomitant]
     Indication: DIABETES MELLITUS
  4. UNKNOWN INHALERS [Concomitant]
     Indication: SARCOIDOSIS
  5. HUMIRA [Suspect]
     Indication: SARCOIDOSIS
     Dosage: ONCE A WEEK: FOUR INJECTIONS TOTAL
     Dates: start: 20120201
  6. DEMADEX [Concomitant]
     Indication: FLUID RETENTION
  7. FOLIC ACID [Concomitant]
     Indication: VITAMIN SUPPLEMENTATION
  8. LOVAZA [Concomitant]
     Indication: BLOOD CHOLESTEROL INCREASED
  9. SPIRONOLACTONE [Concomitant]
     Indication: RENAL FUNCTION TEST ABNORMAL
  10. PREDNISONE TAB [Concomitant]
     Indication: SARCOIDOSIS

REACTIONS (8)
  - PALPITATIONS [None]
  - BLOOD GLUCOSE INCREASED [None]
  - OFF LABEL USE [None]
  - PULMONARY EMBOLISM [None]
  - DYSPNOEA [None]
  - HYPERSENSITIVITY [None]
  - HYPERTENSION [None]
  - NEUROPATHY PERIPHERAL [None]
